FAERS Safety Report 10451138 (Version 4)
Quarter: 2015Q1

REPORT INFORMATION
  Report Type: Report from Study
  Country: JP (occurrence: JP)
  Receive Date: 20140912
  Receipt Date: 20150202
  Transmission Date: 20150720
  Serious: Yes (Other)
  Sender: FDA-Public Use
  Company Number: JP-009507513-1409JPN005388

PATIENT
  Age: 56 Year
  Sex: Female
  Weight: 43 kg

DRUGS (12)
  1. RIBAVIRIN. [Suspect]
     Active Substance: RIBAVIRIN
     Dosage: 600 MG, 1 IN 1 DAY
     Route: 048
     Dates: start: 20140623
  2. RIBAVIRIN. [Suspect]
     Active Substance: RIBAVIRIN
     Dosage: 400 MG,1 IN 1 DAY
     Route: 048
     Dates: start: 20140512, end: 20140622
  3. POLAPREZINC [Concomitant]
     Active Substance: POLAPREZINC
     Indication: PROPHYLAXIS
     Dosage: 150 MG, 1 IN 1DAY
     Route: 048
     Dates: start: 20140408
  4. PEGINTRON [Suspect]
     Active Substance: PEGINTERFERON ALFA-2B
     Indication: CHRONIC HEPATITIS C
     Dosage: 1.38 MICROGRAM PER KILOGRAM, A WEEK
     Route: 058
     Dates: start: 20140408
  5. EPADEL S [Concomitant]
     Active Substance: ETHYL ICOSAPENTATE\ICOSAPENT
     Indication: PROPHYLAXIS
     Dosage: 1800 MG, 1 IN 1 DAY
     Route: 048
     Dates: start: 20140408
  6. ETODOLAC. [Concomitant]
     Active Substance: ETODOLAC
     Dosage: 200 MG, IN 1 AS NECESSARY
     Route: 048
     Dates: start: 20140408, end: 20140415
  7. LOCOID [Concomitant]
     Active Substance: HYDROCORTISONE BUTYRATE
     Dosage: 2 G, IN 1 AS NECESSARY
     Route: 048
     Dates: start: 20140408, end: 20140415
  8. RIBAVIRIN. [Suspect]
     Active Substance: RIBAVIRIN
     Indication: CHRONIC HEPATITIS C
     Dosage: 600 MG, 1 IN 1 DAY
     Route: 048
     Dates: start: 20140408, end: 20140511
  9. SIMEPREVIR [Suspect]
     Active Substance: SIMEPREVIR
     Indication: CHRONIC HEPATITIS C
     Dosage: 100 MG, ONCE A DAY
     Route: 048
     Dates: start: 20140408, end: 20140629
  10. LOCHOL (FLUVASTATIN SODIUM) [Concomitant]
     Active Substance: FLUVASTATIN SODIUM
     Indication: CHRONIC HEPATITIS C
     Dosage: 30 MG, 1 IN 1 DAY
     Route: 048
     Dates: start: 20140408
  11. PROMAC (POLAPREZINC) [Concomitant]
     Active Substance: POLAPREZINC
     Indication: PROPHYLAXIS
     Dosage: 150 MG, 1 IN 1 DAY
     Route: 048
     Dates: start: 20140408
  12. LUNESTA [Concomitant]
     Active Substance: ESZOPICLONE
     Dosage: 2 G, IN 1 AS NECESSARY
     Route: 048
     Dates: start: 20140408, end: 20140415

REACTIONS (4)
  - Anaemia [Recovered/Resolved]
  - White blood cell count decreased [Recovered/Resolved]
  - Rash [Recovered/Resolved]
  - Decreased appetite [Recovered/Resolved]

NARRATIVE: CASE EVENT DATE: 20140409
